FAERS Safety Report 5333533-4 (Version None)
Quarter: 2007Q2

REPORT INFORMATION
  Report Type: 
  Country: None (occurrence: None)
  Receive Date: 20070524
  Receipt Date: 20070515
  Transmission Date: 20071010
  Serious: Yes (Life-Threatening, Other)
  Sender: FDA-Public Use
  Company Number: CA-NOVOPROD-263712

PATIENT
  Sex: Female
  Weight: 94 kg

DRUGS (8)
  1. NOVOLOG MIX 70/30 [Suspect]
     Indication: INSULIN-REQUIRING TYPE II DIABETES MELLITUS
     Dosage: 140 IU, QD
     Route: 030
     Dates: start: 20070423
  2. NOVOLOG MIX 70/30 [Suspect]
     Dosage: 40 IU, BID
  3. METFORMIN HCL [Concomitant]
     Dosage: 1 G, BID
     Route: 048
     Dates: start: 20000101
  4. GLYBURIDE [Concomitant]
     Dosage: 10 MG, BID
     Route: 048
     Dates: start: 20070101, end: 20070426
  5. GLYBURIDE [Concomitant]
     Dosage: 5 MG, BID
     Route: 048
     Dates: start: 20070427
  6. GEMFIBROZIL [Concomitant]
     Dosage: 600 UNK, BID
     Route: 048
     Dates: start: 20000101
  7. MICARDIS [Concomitant]
     Dosage: 80 MG, QD
     Route: 048
     Dates: start: 20000101
  8. LIPITOR [Concomitant]
     Dosage: 10 MG, QD
     Route: 048
     Dates: start: 20000101

REACTIONS (2)
  - HYPOGLYCAEMIA [None]
  - HYPOTENSION [None]
